FAERS Safety Report 23623629 (Version 4)
Quarter: 2024Q2

REPORT INFORMATION
  Report Type: Spontaneous
  Country: UY (occurrence: UY)
  Receive Date: 20240312
  Receipt Date: 20240402
  Transmission Date: 20240716
  Serious: Yes (Death, Hospitalization, Other)
  Sender: FDA-Public Use
  Company Number: UY-009507513-2403URY002659

PATIENT
  Age: 67 Year
  Sex: Female

DRUGS (5)
  1. KEYTRUDA [Suspect]
     Active Substance: PEMBROLIZUMAB
     Indication: Bladder cancer
     Dosage: 200 MILLIGRAM, Q3W
     Route: 042
  2. KEYTRUDA [Suspect]
     Active Substance: PEMBROLIZUMAB
     Dosage: 200 MILLIGRAM, Q3W
     Route: 042
     Dates: start: 20240102, end: 20240102
  3. VALSARTAN [Concomitant]
     Active Substance: VALSARTAN
     Indication: Hypertension
  4. BROMPTON COCKTAIL [Concomitant]
     Indication: Pelvic pain
     Dosage: 2 CC, Q6H
     Dates: start: 202308
  5. ACETAMINOPHEN [Concomitant]
     Active Substance: ACETAMINOPHEN
     Indication: Pelvic pain
     Dosage: 1 GRAM, TID
     Dates: start: 202308

REACTIONS (12)
  - Pancreatitis acute [Fatal]
  - Diabetic ketoacidosis [Unknown]
  - Diabetes mellitus [Unknown]
  - Intestinal infarction [Unknown]
  - Pneumoperitoneum [Unknown]
  - Pneumatosis intestinalis [Unknown]
  - Gastrointestinal oedema [Unknown]
  - Necrotic lymphadenopathy [Unknown]
  - Pleural effusion [Unknown]
  - Gastrointestinal inflammation [Unknown]
  - Muscle mass [Unknown]
  - Gastrointestinal wall thickening [Unknown]

NARRATIVE: CASE EVENT DATE: 20240101
